FAERS Safety Report 9280264 (Version 1)
Quarter: 2012Q4

REPORT INFORMATION
  Report Type: Spontaneous
  Country: US (occurrence: None)
  Receive Date: 20120919
  Receipt Date: 20120919
  Transmission Date: 20130627
  Serious: Yes (Other)
  Sender: FDA-Public Use
  Company Number: 2010MA003157

PATIENT
  Sex: Female
  Weight: 96.16 kg

DRUGS (48)
  1. METOCLOPRAMIDE TABLETS USP, 10 MG (PUREPAC) [Suspect]
     Indication: GERD
     Dates: start: 20010607
  2. ACETAMINOPHEN [Concomitant]
  3. CODEINE [Concomitant]
  4. ACETAZOLAMIDE [Concomitant]
  5. ADVAIR [Concomitant]
  6. AMBIEN [Concomitant]
  7. AMITRIPTYLINE [Concomitant]
  8. ASPIRINE [Concomitant]
  9. CELEBREX [Concomitant]
  10. CLONIDINE [Concomitant]
  11. COMBIVENT [Concomitant]
  12. DEPAKOTE [Concomitant]
  13. DIAZEPAM [Concomitant]
  14. DOCUSATE [Concomitant]
  15. ERY-TAB [Concomitant]
  16. ERYTHROMYCIN [Concomitant]
  17. FLONASE [Concomitant]
  18. FLURAZEPAM [Concomitant]
  19. FUROSEMIDE [Concomitant]
  20. HEPARIN [Concomitant]
  21. HYDROCODONE W/APAP [Concomitant]
  22. LEVAQUIN [Concomitant]
  23. LEVOTHYROXINE [Concomitant]
  24. LISINOPRIL [Concomitant]
  25. MECLIZINE [Concomitant]
  26. METRONIDAZOLE [Concomitant]
  27. MICARDIS [Concomitant]
  28. NAPROXEN [Concomitant]
  29. PREDNISONE [Concomitant]
  30. PREVACID [Concomitant]
  31. PRILOSEC [Concomitant]
  32. PROMETHAZINE [Concomitant]
  33. PROPRANOLOL [Concomitant]
  34. PROTONIX [Concomitant]
  35. PSEUDOEPHEDRINE [Concomitant]
  36. SULFAMETHOXAZOLE/TMP DS [Concomitant]
  37. SYNTHROID [Concomitant]
  38. TOPAMAX [Concomitant]
  39. ZESTRIL [Concomitant]
  40. ZOCOR [Concomitant]
  41. ZOLPIDEM [Concomitant]
  42. TRAMADOL [Concomitant]
  43. SIMVASTATIN [Concomitant]
  44. RISPERIDONE [Concomitant]
  45. PRIMIDONE [Concomitant]
  46. LORAZEPAM [Concomitant]
  47. DIVALPROEX [Concomitant]
  48. ARICEPT [Concomitant]

REACTIONS (22)
  - Parkinson^s disease [None]
  - Dementia with Lewy bodies [None]
  - Tremor [None]
  - Economic problem [None]
  - Emotional distress [None]
  - Chronic obstructive pulmonary disease [None]
  - Headache [None]
  - Tremor [None]
  - Bipolar disorder [None]
  - Flat affect [None]
  - Masked facies [None]
  - Gait disturbance [None]
  - Muscle rigidity [None]
  - Resting tremor [None]
  - Akinesia [None]
  - Bradykinesia [None]
  - Mental disorder [None]
  - Macrocytosis [None]
  - Restless legs syndrome [None]
  - Insomnia [None]
  - Anxiety [None]
  - Muscle contractions involuntary [None]
